FAERS Safety Report 8545437 (Version 4)
Quarter: 2013Q2

REPORT INFORMATION
  Report Type: Report from Study
  Country: BE (occurrence: BE)
  Receive Date: 20120503
  Receipt Date: 20130502
  Transmission Date: 20140414
  Serious: Yes (Death, Other)
  Sender: FDA-Public Use
  Company Number: BE-CELGENEUS-013-C5013-12042259

PATIENT
  Age: 88 Year
  Sex: Male
  Weight: 67 kg

DRUGS (27)
  1. PLACEBO FOR CC-5013 [Suspect]
     Indication: PROSTATE CANCER
     Route: 048
     Dates: start: 20111004, end: 20111115
  2. DOCETAXEL [Suspect]
     Indication: PROSTATE CANCER
     Route: 065
     Dates: start: 20111004, end: 20111115
  3. PREDNISONE [Suspect]
     Indication: PROSTATE CANCER
     Dosage: 10 MILLIGRAM
     Route: 065
     Dates: start: 20111004, end: 20111115
  4. BISOPROLOL [Concomitant]
     Indication: PROPHYLAXIS
     Dosage: 5 MILLIGRAM
     Route: 065
     Dates: start: 20090624
  5. TRIPTORELIN [Concomitant]
     Indication: PROSTATE CANCER
     Dosage: 3.75 MILLIGRAM
     Route: 065
     Dates: start: 20110912
  6. IRON GLUCONATE [Concomitant]
     Indication: IRON DEFICIENCY ANAEMIA
     Dosage: 695 MILLIGRAM
     Route: 065
     Dates: start: 20111202
  7. LEVOFLOXACINE [Concomitant]
     Indication: URINARY TRACT INFECTION
     Dosage: 500 MILLIGRAM
     Route: 065
     Dates: start: 20111205, end: 20111215
  8. FUROSEMIDE [Concomitant]
     Indication: ATRIAL FIBRILLATION
     Dosage: 20 MILLIGRAM
     Route: 065
     Dates: start: 20111209, end: 20111209
  9. FUROSEMIDE [Concomitant]
     Indication: ARRHYTHMIA PROPHYLAXIS
     Dosage: 40 MILLIGRAM
     Route: 065
     Dates: start: 20111210, end: 20111210
  10. BUMETANIDE [Concomitant]
     Indication: ATRIAL FIBRILLATION
     Route: 065
     Dates: start: 20111211
  11. SPIRONOLACTONE [Concomitant]
     Indication: ARRHYTHMIA PROPHYLAXIS
     Route: 065
     Dates: start: 20111211, end: 20120105
  12. NOVO MIX 30 [Concomitant]
     Indication: DIABETES MELLITUS
     Dosage: 16 IU (INTERNATIONAL UNIT)
     Route: 065
     Dates: start: 20111208, end: 20111209
  13. NOVO MIX 30 [Concomitant]
     Dosage: 8 IU (INTERNATIONAL UNIT)
     Route: 065
     Dates: start: 20111210
  14. LOPERAMIDE [Concomitant]
     Indication: DIARRHOEA
     Route: 065
     Dates: start: 20111214, end: 20111214
  15. LOPERAMIDE [Concomitant]
     Route: 065
     Dates: start: 20111227, end: 20111227
  16. ENOXAPARIN [Concomitant]
     Indication: ATRIAL FIBRILLATION
     Route: 065
     Dates: start: 20111201, end: 20111206
  17. ENOXAPARIN [Concomitant]
     Route: 065
     Dates: start: 20111207, end: 20120106
  18. SIMVASTATINE [Concomitant]
     Indication: HYPERCHOLESTEROLAEMIA
     Route: 065
     Dates: start: 20111031, end: 20120105
  19. METFORMIN [Concomitant]
     Indication: DIABETES MELLITUS
     Route: 065
     Dates: start: 20111128
  20. GLICLAZIDE [Concomitant]
     Indication: DIABETES MELLITUS
     Route: 065
     Dates: start: 20111128, end: 201112
  21. FLUTAMIDE [Concomitant]
     Indication: PROSTATE CANCER
     Route: 065
     Dates: start: 20111201, end: 20111221
  22. CLONIDINE [Concomitant]
     Indication: HYPERTENSION
     Route: 065
     Dates: start: 20111201, end: 20111207
  23. ACETYLSALICYLIC ACID [Concomitant]
     Indication: CEREBROVASCULAR ACCIDENT
     Route: 065
     Dates: start: 20111201, end: 20111207
  24. OMEPRAZOLE [Concomitant]
     Indication: MELAENA
     Route: 065
     Dates: start: 20111226, end: 20120116
  25. FLAMINAL HYDRO [Concomitant]
     Indication: SKIN ULCER
     Route: 065
     Dates: start: 20111206
  26. ISOBETADINE [Concomitant]
     Indication: SKIN DISORDER
     Route: 065
     Dates: start: 20111206, end: 20120106
  27. MOVIPREP [Concomitant]
     Indication: COLONOSCOPY
     Route: 065
     Dates: start: 20120104, end: 20120104

REACTIONS (2)
  - Prostate cancer [Fatal]
  - Rectal adenocarcinoma [Not Recovered/Not Resolved]
